FAERS Safety Report 14069372 (Version 2)
Quarter: 2018Q1

REPORT INFORMATION
  Report Type: Spontaneous
  Country: AE (occurrence: AE)
  Receive Date: 20171010
  Receipt Date: 20180110
  Transmission Date: 20180508
  Serious: Yes (Death, Life-Threatening, Hospitalization, Other)
  Sender: FDA-Public Use
  Company Number: AE-JNJFOC-20171005694

PATIENT
  Age: 73 Year
  Sex: Male

DRUGS (2)
  1. PREDNISONE. [Suspect]
     Active Substance: PREDNISONE
     Indication: PROSTATE CANCER METASTATIC
     Dosage: DURATION: 1 MONTH
     Route: 065
     Dates: start: 201709, end: 201710
  2. ZYTIGA [Suspect]
     Active Substance: ABIRATERONE ACETATE
     Indication: PROSTATE CANCER METASTATIC
     Dosage: DURATION: 1 MONTH
     Route: 048
     Dates: start: 201709, end: 201710

REACTIONS (3)
  - Pneumonia [Unknown]
  - Prostate cancer metastatic [Fatal]
  - Acute respiratory distress syndrome [Recovered/Resolved]
